FAERS Safety Report 4657496-X (Version None)
Quarter: 2005Q2

REPORT INFORMATION
  Report Type: 
  Country: None (occurrence: None)
  Receive Date: 20050510
  Receipt Date: 20050502
  Transmission Date: 20051028
  Serious: Yes (Other)
  Sender: FDA-Public Use
  Company Number: US-JNJFOC-20050204516

PATIENT
  Sex: Male
  Weight: 24.95 kg

DRUGS (2)
  1. CONCERTA [Suspect]
     Route: 049
     Dates: start: 20040601
  2. CONCERTA [Suspect]
     Route: 049
     Dates: start: 20040601

REACTIONS (3)
  - CEREBROVASCULAR ACCIDENT [None]
  - DEHYDRATION [None]
  - GASTROENTERITIS VIRAL [None]
